FAERS Safety Report 12703458 (Version 2)
Quarter: 2017Q1

REPORT INFORMATION
  Report Type: Spontaneous
  Country: US (occurrence: US)
  Receive Date: 20160831
  Receipt Date: 20170310
  Transmission Date: 20170428
  Serious: Yes (Death, Other)
  Sender: FDA-Public Use
  Company Number: US-PFIZER INC-2016402737

PATIENT
  Age: 36 Year
  Sex: Female

DRUGS (2)
  1. EPINEPHRINE. [Suspect]
     Active Substance: EPINEPHRINE
     Indication: ANAESTHESIA
     Dosage: UNK (1:1,000 SOLUTION, TWO BOTTLE MIXED IN A JUG AND  40 C.C SOLUTION WHICH WAS INJECTED)
  2. NOVOCAINE [Concomitant]
     Active Substance: PROCAINE
     Indication: ANAESTHESIA
     Dosage: UNK, SUFFICIENT TO PRODUCE A 0.5% SOLUTION WHEN ADDED TO ^A.^ CONTAINS CHLOROCRESOL 0.1 %

REACTIONS (3)
  - Accidental overdose [Fatal]
  - Toxicity to various agents [Fatal]
  - Drug prescribing error [Fatal]
